FAERS Safety Report 4661141-7 (Version None)
Quarter: 2005Q2

REPORT INFORMATION
  Report Type: 
  Country: None (occurrence: None)
  Receive Date: 20050511
  Receipt Date: 20050428
  Transmission Date: 20051028
  Serious: Yes (Hospitalization)
  Sender: FDA-Public Use
  Company Number: 2005068055

PATIENT
  Age: 13 Year
  Sex: Male
  Weight: 90 kg

DRUGS (3)
  1. ATARAX [Suspect]
     Indication: ANXIETY
     Dosage: 50 MG (25 MG, 2 IN 1 D), ORAL
     Route: 048
     Dates: start: 20050118, end: 20050302
  2. ATARAX [Suspect]
     Indication: PHOBIA
     Dosage: 50 MG (25 MG, 2 IN 1 D), ORAL
     Route: 048
     Dates: start: 20050118, end: 20050302
  3. DERMOPHIL INDIEN (LEVOMENTHOL, PERUVIAN BALSAM, PHENYL SALICYLATE) [Suspect]
     Indication: DRY SKIN
     Dosage: TOPICAL
     Dates: start: 20050222, end: 20050222

REACTIONS (2)
  - HENOCH-SCHONLEIN PURPURA [None]
  - LEUKOCYTOCLASTIC VASCULITIS [None]
